FAERS Safety Report 4754530-3 (Version None)
Quarter: 2005Q3

REPORT INFORMATION
  Report Type: 
  Country: None (occurrence: None)
  Receive Date: 20050829
  Receipt Date: 20040913
  Transmission Date: 20060218
  Serious: No
  Sender: FDA-Public Use
  Company Number: US-GLAXOSMITHKLINE-A0525555A

PATIENT
  Age: 37 Year
  Sex: Male

DRUGS (1)
  1. ACYCLOVIR [Suspect]
     Route: 061

REACTIONS (1)
  - DRUG INEFFECTIVE [None]
